FAERS Safety Report 9470111 (Version 1)
Quarter: 2013Q3

REPORT INFORMATION
  Report Type: Spontaneous
  Country: US (occurrence: None)
  Receive Date: 20130820
  Receipt Date: 20130820
  Transmission Date: 20140515
  Serious: Yes (Death)
  Sender: FDA-Public Use
  Company Number: None

PATIENT
  Age: 59 Year
  Sex: Female
  Weight: 61.24 kg

DRUGS (4)
  1. FENTANYL TRANSDERMAL PATCH [Suspect]
     Indication: FIBROMYALGIA
     Dosage: 100 MCG PER HOUR  1 PATCH EVERY 72 HOURS  APPLYED TO SKIN
     Dates: start: 20091201, end: 20120808
  2. TRAMADOL [Concomitant]
  3. KLONOPIN [Concomitant]
  4. ASPIRIN [Concomitant]

REACTIONS (2)
  - Overdose [None]
  - Medication error [None]
